FAERS Safety Report 8951182 (Version 1)
Quarter: 2012Q4

REPORT INFORMATION
  Report Type: Spontaneous
  Country: US (occurrence: None)
  Receive Date: 20121106
  Receipt Date: 20121106
  Transmission Date: 20130627
  Serious: Yes (Other)
  Sender: FDA-Public Use
  Company Number: 2012033793

PATIENT
  Age: 60 Year
  Sex: Female

DRUGS (1)
  1. HIZENTRA [Suspect]
     Route: 058

REACTIONS (2)
  - Hepatitis C virus test positive [None]
  - Suspected transmission of an infectious agent via product [None]
